FAERS Safety Report 20770187 (Version 3)
Quarter: 2022Q2

REPORT INFORMATION
  Report Type: Report from Study
  Country: US (occurrence: US)
  Receive Date: 20220429
  Receipt Date: 20220610
  Transmission Date: 20220720
  Serious: Yes (Hospitalization, Other)
  Sender: FDA-Public Use
  Company Number: US-HBP-2022US025456

PATIENT
  Age: 36 Year
  Sex: Female

DRUGS (1)
  1. TRUSELTIQ [Suspect]
     Active Substance: INFIGRATINIB
     Indication: Cholangiocarcinoma
     Dosage: 50 MILLIGRAM, QD
     Route: 048
     Dates: start: 20220303, end: 202204

REACTIONS (11)
  - Pain [Not Recovered/Not Resolved]
  - Thrombosis [Recovered/Resolved]
  - Memory impairment [Recovered/Resolved]
  - Hypoaesthesia [Unknown]
  - Limb discomfort [Unknown]
  - Myalgia [Unknown]
  - Incorrect dosage administered [Recovered/Resolved]
  - Constipation [Recovered/Resolved]
  - Dyspepsia [Unknown]
  - Headache [Unknown]
  - Drug ineffective [Unknown]

NARRATIVE: CASE EVENT DATE: 20220301
